FAERS Safety Report 14790934 (Version 5)
Quarter: 2018Q2

REPORT INFORMATION
  Report Type: Report from Study
  Country: DE (occurrence: DE)
  Receive Date: 20180423
  Receipt Date: 20180629
  Transmission Date: 20180711
  Serious: Yes (Other)
  Sender: FDA-Public Use
  Company Number: DE-PFIZER INC-2018159219

PATIENT
  Age: 42 Year
  Sex: Male

DRUGS (9)
  1. LEVOMETHADONE [Suspect]
     Active Substance: LEVOMETHADONE
     Dosage: UNK
  2. NORDAZEPAM [Suspect]
     Active Substance: NORDAZEPAM
     Dosage: UNK
  3. 3,4-METHYLENEDIOXYPYROVALERONE [Suspect]
     Active Substance: METHYLENEDIOXYPYROVALERONE HYDROCHLORIDE
     Dosage: UNK
  4. PREGABALIN. [Suspect]
     Active Substance: PREGABALIN
     Dosage: UNK
  5. TEMAZEPAM. [Suspect]
     Active Substance: TEMAZEPAM
     Dosage: UNK
  6. DIAZEPAM. [Suspect]
     Active Substance: DIAZEPAM
     Dosage: UNK
  7. CLONAZEPAM. [Suspect]
     Active Substance: CLONAZEPAM
     Dosage: UNK
  8. LORAZEPAM. [Suspect]
     Active Substance: LORAZEPAM
     Dosage: UNK
  9. OXAZEPAM. [Suspect]
     Active Substance: OXAZEPAM
     Dosage: UNK

REACTIONS (4)
  - Aggression [Unknown]
  - Sensorimotor disorder [Unknown]
  - Toxicity to various agents [Unknown]
  - Coordination abnormal [Unknown]
